FAERS Safety Report 6083264-0 (Version None)
Quarter: 2009Q1

REPORT INFORMATION
  Report Type: 
  Country: None (occurrence: None)
  Receive Date: 20090213
  Receipt Date: 20090213
  Transmission Date: 20090719
  Serious: Yes (Death)
  Sender: FDA-Public Use
  Company Number: None

PATIENT
  Age: 74 Year
  Sex: Female
  Weight: 54.4316 kg

DRUGS (2)
  1. FLUOROURACIL [Suspect]
     Indication: ANAL CANCER
     Dosage: STANDARD FOR ANAL CANCER 5 DAYS INTRAVENOUS IV BOLUS
     Route: 040
     Dates: start: 20090119, end: 20090124
  2. RADIATION THERAPY [Concomitant]

REACTIONS (11)
  - BLOOD COUNT ABNORMAL [None]
  - BURN OF INTERNAL ORGANS [None]
  - CONFUSIONAL STATE [None]
  - DIARRHOEA [None]
  - DIHYDROPYRIMIDINE DEHYDROGENASE DEFICIENCY [None]
  - DYSPNOEA [None]
  - FATIGUE [None]
  - GENERAL PHYSICAL HEALTH DETERIORATION [None]
  - OVERDOSE [None]
  - SYNCOPE [None]
  - THROAT LESION [None]
